FAERS Safety Report 10500831 (Version 2)
Quarter: 2014Q4

REPORT INFORMATION
  Report Type: Spontaneous
  Country: US (occurrence: US)
  Receive Date: 20141007
  Receipt Date: 20141114
  Transmission Date: 20150528
  Serious: No
  Sender: FDA-Public Use
  Company Number: US-009507513-1410USA001481

PATIENT
  Age: 23 Year
  Sex: Female
  Weight: 81.63 kg

DRUGS (5)
  1. VALACYCLOVIR HYDROCHLORIDE. [Concomitant]
     Active Substance: VALACYCLOVIR HYDROCHLORIDE
     Dosage: 1 DF, BID
     Route: 048
     Dates: start: 20140721
  2. NEXPLANON [Suspect]
     Active Substance: ETONOGESTREL
     Indication: CONTRACEPTION
     Dosage: UNK
     Route: 059
     Dates: start: 20140915, end: 20140930
  3. TOPAMAX [Concomitant]
     Active Substance: TOPIRAMATE
     Dosage: 150 MG EVERY AM AND 200 MG EVERY PM
     Route: 048
  4. XANAX [Concomitant]
     Active Substance: ALPRAZOLAM
     Dosage: 1 DF, UNK
     Route: 048
     Dates: start: 20140915
  5. TYLENOL WITH CODEINE [Concomitant]
     Active Substance: ACETAMINOPHEN\CODEINE PHOSPHATE
     Indication: PAIN PROPHYLAXIS
     Dosage: 1-2 TABLETS ORAL EVERY 6 HR
     Route: 048
     Dates: start: 20140902

REACTIONS (3)
  - Amenorrhoea [Unknown]
  - Malaise [Unknown]
  - Drug hypersensitivity [Recovered/Resolved]

NARRATIVE: CASE EVENT DATE: 2014
